FAERS Safety Report 8177502-8 (Version None)
Quarter: 2012Q1

REPORT INFORMATION
  Report Type: 
  Country: None (occurrence: None)
  Receive Date: 20120301
  Receipt Date: 20120222
  Transmission Date: 20120608
  Serious: Yes (Hospitalization)
  Sender: FDA-Public Use
  Company Number: US-ACTELION-A-US2011-50877

PATIENT

DRUGS (2)
  1. ADCIRCA [Concomitant]
  2. TRACLEER [Suspect]
     Indication: PULMONARY ARTERIAL HYPERTENSION
     Dosage: UNK MG, UNK
     Route: 048
     Dates: start: 20100528

REACTIONS (6)
  - PULMONARY ARTERIAL HYPERTENSION [None]
  - FALL [None]
  - PULMONARY OEDEMA [None]
  - LUNG DISORDER [None]
  - OEDEMA PERIPHERAL [None]
  - DYSPNOEA [None]
